FAERS Safety Report 6830805-9 (Version None)
Quarter: 2010Q3

REPORT INFORMATION
  Report Type: 
  Country: None (occurrence: None)
  Receive Date: 20100709
  Receipt Date: 20100709
  Transmission Date: 20110219
  Serious: Yes (Life-Threatening)
  Sender: FDA-Public Use
  Company Number: None

PATIENT
  Age: 54 Year
  Sex: Male

DRUGS (1)
  1. NAPROXEN [Suspect]
     Indication: PAIN
     Dosage: 1000MG BID PO
     Route: 048
     Dates: start: 20061114, end: 20100408

REACTIONS (3)
  - ANAEMIA [None]
  - DIZZINESS [None]
  - GASTRIC HAEMORRHAGE [None]
